FAERS Safety Report 19487448 (Version 1)
Quarter: 2021Q3

REPORT INFORMATION
  Report Type: Spontaneous
  Country: US (occurrence: US)
  Receive Date: 20210702
  Receipt Date: 20210702
  Transmission Date: 20211014
  Serious: Yes (Life-Threatening, Hospitalization)
  Sender: FDA-Public Use
  Company Number: US-MYLANLABS-2021M1039184

PATIENT
  Age: 76 Year
  Sex: Male

DRUGS (6)
  1. VINCRISTINE [Concomitant]
     Active Substance: VINCRISTINE
     Indication: FOLLICULAR LYMPHOMA
     Route: 065
  2. PREDNISONE. [Concomitant]
     Active Substance: PREDNISONE
     Indication: FOLLICULAR LYMPHOMA
     Route: 065
  3. DOXORUBICIN [Concomitant]
     Active Substance: DOXORUBICIN
     Indication: FOLLICULAR LYMPHOMA
     Route: 065
  4. CYCLOPHOSPHAMIDE. [Concomitant]
     Active Substance: CYCLOPHOSPHAMIDE
     Indication: FOLLICULAR LYMPHOMA
     Route: 065
  5. VALPROIC ACID. [Suspect]
     Active Substance: VALPROIC ACID
     Indication: GENERALISED TONIC-CLONIC SEIZURE
     Dosage: ONE DOSE
     Route: 065
  6. RITUXIMAB. [Suspect]
     Active Substance: RITUXIMAB
     Indication: FOLLICULAR LYMPHOMA
     Dosage: INFUSION

REACTIONS (4)
  - Status epilepticus [Recovering/Resolving]
  - Condition aggravated [Not Recovered/Not Resolved]
  - Hyperammonaemia [Not Recovered/Not Resolved]
  - Generalised tonic-clonic seizure [Recovering/Resolving]
